FAERS Safety Report 5893072-9 (Version None)
Quarter: 2008Q3

REPORT INFORMATION
  Report Type: 
  Country: None (occurrence: None)
  Receive Date: 20080923
  Receipt Date: 20080722
  Transmission Date: 20090109
  Serious: Yes (Other)
  Sender: FDA-Public Use
  Company Number: US-ASTRAZENECA-2006UW12077

PATIENT
  Age: 422 Month
  Sex: Female
  Weight: 88.5 kg

DRUGS (10)
  1. SEROQUEL [Suspect]
     Indication: BIPOLAR DISORDER
     Dosage: 200 - 800MG
     Route: 048
  2. SEROQUEL [Suspect]
     Indication: DEPRESSION
     Dosage: 200 - 800MG
     Route: 048
  3. SEROQUEL [Suspect]
     Indication: ANXIETY
     Dosage: 200 - 800MG
     Route: 048
  4. SEROQUEL [Suspect]
     Route: 048
     Dates: start: 20000101, end: 20020801
  5. SEROQUEL [Suspect]
     Route: 048
     Dates: start: 20000101, end: 20020801
  6. SEROQUEL [Suspect]
     Route: 048
     Dates: start: 20000101, end: 20020801
  7. ZYPREXA [Suspect]
  8. ABILIFY [Concomitant]
  9. GEODON [Concomitant]
  10. RISPERDAL [Concomitant]

REACTIONS (2)
  - DIABETES MELLITUS [None]
  - PANCREATITIS [None]
